FAERS Safety Report 5532088-9 (Version None)
Quarter: 2007Q4

REPORT INFORMATION
  Report Type: 
  Country: None (occurrence: None)
  Receive Date: 20071203
  Receipt Date: 20071123
  Transmission Date: 20080405
  Serious: Yes (Hospitalization)
  Sender: FDA-Public Use
  Company Number: B0497797A

PATIENT
  Age: 49 Year
  Sex: Male

DRUGS (1)
  1. AUGMENTIN '125' [Suspect]
     Indication: PHARYNGITIS
     Dosage: 1G PER DAY
     Route: 048
     Dates: start: 20071031, end: 20071101

REACTIONS (4)
  - CHEST DISCOMFORT [None]
  - DYSPHONIA [None]
  - RESPIRATORY DISORDER [None]
  - WHEEZING [None]
